FAERS Safety Report 14764240 (Version 5)
Quarter: 2021Q3

REPORT INFORMATION
  Report Type: Report from Study
  Country: US (occurrence: US)
  Receive Date: 20180416
  Receipt Date: 20210818
  Transmission Date: 20211014
  Serious: Yes (Death)
  Sender: FDA-Public Use
  Company Number: US-PFIZER INC-2018040953

PATIENT
  Age: 53 Year
  Sex: Male
  Weight: 50 kg

DRUGS (8)
  1. OXYCODONE [Concomitant]
     Active Substance: OXYCODONE
     Indication: PAIN
     Dosage: 5 MG, 1 TAB ORALLY EVERY 6 HOURS, AS NEEDED
     Route: 048
     Dates: start: 20180108, end: 20180128
  2. CISPLATIN. [Suspect]
     Active Substance: CISPLATIN
     Indication: SQUAMOUS CELL CARCINOMA OF HEAD AND NECK
     Dosage: DAY 1, 22, AND 43 OF CRT PHASE
     Route: 041
     Dates: start: 20170613, end: 20170726
  3. SCOPOLAMINE /00008701/ [Concomitant]
     Active Substance: SCOPOLAMINE
     Dosage: 1.5 MG, 1 PATCH TRANSDERMAL EVERY 72 HOURS
     Route: 062
     Dates: start: 20180116, end: 20180128
  4. AMPICILLIN [Concomitant]
     Active Substance: AMPICILLIN
     Dosage: 500 MG, 1 CAP ORALLY 2 TIMES A DAY
     Route: 048
     Dates: start: 20180116, end: 20180128
  5. ADVIL [Suspect]
     Active Substance: IBUPROFEN
     Indication: PAIN
     Dosage: 400?600 MG, 4X/DAY(EVERY 6 HOURS)
     Route: 048
     Dates: start: 20171212, end: 20180116
  6. XOPENEX HFA [Concomitant]
     Active Substance: LEVALBUTEROL TARTRATE
     Dosage: 45 MCH/INH, 2 PUFFS INHALATED ONCE A DAYX30 DAYS, AS NEEDED
     Route: 055
     Dates: start: 20180116, end: 20180128
  7. PLACEBO [Suspect]
     Active Substance: UNSPECIFIED INGREDIENT
     Indication: SQUAMOUS CELL CARCINOMA OF HEAD AND NECK
     Dosage: UNK
     Route: 042
     Dates: start: 20170606, end: 20180102
  8. FENTANYL. [Concomitant]
     Active Substance: FENTANYL
     Indication: PAIN
     Dosage: 50 MCG/HR, APPLY TOPICALLY TO AFFECTED AREA EVERY 3 DAYS X 30 DAYS
     Route: 061
     Dates: start: 20171002, end: 20180128

REACTIONS (1)
  - Pharyngeal haemorrhage [Fatal]

NARRATIVE: CASE EVENT DATE: 20180128
